FAERS Safety Report 6795830 (Version 2)
Quarter: 2019Q1

REPORT INFORMATION
  Report Type: Spontaneous
  Country: GB (occurrence: GB)
  Receive Date: 20081024
  Receipt Date: 20190220
  Transmission Date: 20190418
  Serious: Yes (Other)
  Sender: FDA-Public Use
  Company Number: GB-PFIZER INC-2008086796

PATIENT
  Age: 60 Year
  Sex: Male

DRUGS (2)
  1. CHAMPIX [Suspect]
     Active Substance: VARENICLINE TARTRATE
     Indication: SMOKING CESSATION THERAPY
     Dosage: 1 MG, 2X/DAY
     Route: 048
     Dates: start: 20080620, end: 20080818
  2. CHLORAMPHENICOL [Concomitant]
     Active Substance: CHLORAMPHENICOL
     Dosage: 1 DF, 4X/DAY
     Route: 047
     Dates: start: 20080619

REACTIONS (1)
  - Swelling [Not Recovered/Not Resolved]

NARRATIVE: CASE EVENT DATE: 20080814
